FAERS Safety Report 4615393-X (Version None)
Quarter: 2005Q1

REPORT INFORMATION
  Report Type: 
  Country: None (occurrence: None)
  Receive Date: 20050317
  Receipt Date: 20050303
  Transmission Date: 20050727
  Serious: Yes (Hospitalization)
  Sender: FDA-Public Use
  Company Number: DSA_26030_2005

PATIENT
  Age: 67 Year
  Sex: Male

DRUGS (4)
  1. TEVETEN [Suspect]
     Dosage: 600 MG Q DAY PO
     Route: 048
     Dates: start: 20040915
  2. ASPIRIN ENTERIC COATED K.P. [Concomitant]
  3. ZOCOR [Concomitant]
  4. INSULIN /CZE/ [Concomitant]

REACTIONS (2)
  - AORTIC VALVE REPLACEMENT [None]
  - CORONARY ARTERY SURGERY [None]
